FAERS Safety Report 8397756 (Version 4)
Quarter: 2013Q1

REPORT INFORMATION
  Report Type: Spontaneous
  Country: US (occurrence: US)
  Receive Date: 20120209
  Receipt Date: 20130322
  Transmission Date: 20140127
  Serious: Yes (Hospitalization)
  Sender: FDA-Public Use
  Company Number: US-ACTELION-A-NJ2012-60482

PATIENT
  Age: 17 Year
  Sex: Male

DRUGS (4)
  1. TRACLEER [Suspect]
     Indication: PULMONARY ARTERIAL HYPERTENSION
     Dosage: 125 MG, BID
     Route: 048
     Dates: start: 200712
  2. FLOLAN [Concomitant]
  3. SILDENAFIL [Concomitant]
  4. COUMADIN [Concomitant]

REACTIONS (11)
  - Staphylococcal infection [Unknown]
  - Device related infection [Recovering/Resolving]
  - Blood culture positive [Recovering/Resolving]
  - Micrococcus test positive [Recovering/Resolving]
  - Staphylococcus test positive [Recovering/Resolving]
  - Pyrexia [Recovering/Resolving]
  - Pneumonia [Unknown]
  - Oxygen consumption increased [Unknown]
  - Pleural effusion [Recovering/Resolving]
  - Catheter site erythema [Unknown]
  - Catheter site swelling [Unknown]
